FAERS Safety Report 10409183 (Version 2)
Quarter: 2014Q4

REPORT INFORMATION
  Report Type: Spontaneous
  Country: US (occurrence: None)
  Receive Date: 20140604
  Receipt Date: 20141010
  Transmission Date: 20150528
  Serious: No
  Sender: FDA-Public Use
  Company Number: 163-POMAL-14051451

PATIENT
  Age: 75 Year
  Sex: Male

DRUGS (13)
  1. NOVOLOG [Concomitant]
     Active Substance: INSULIN ASPART
  2. ZOFRAN (ONDANSETRON HYDROCHLORIDE) [Concomitant]
  3. AMARYL (GLIMPERIDE) (UNKNOWN) [Concomitant]
  4. OCUVITE (OCUVITE) UNKNOWN [Concomitant]
  5. MULTIVITAMINS (MULTIVITAMINS) [Concomitant]
     Active Substance: VITAMINS
  6. VITAMIN D3 [Concomitant]
     Active Substance: CHOLECALCIFEROL
  7. GLIMEPIRIDE (GLIMEPIRIDE) [Concomitant]
     Active Substance: GLIMEPIRIDE
  8. POMALYST [Suspect]
     Active Substance: POMALIDOMIDE
     Indication: PLASMA CELL MYELOMA
     Route: 048
     Dates: start: 20130416
  9. COQ-10 (UBIDECARENONE) [Concomitant]
  10. ALLERGY 4 HOUR (CHLORPHENAMINE MALEATE) [Concomitant]
  11. ASPIRIN (ACETYLSALICYLIC ACID) UNKNOWN [Concomitant]
  12. LISINOPRIL (LISINOPRIL)UNKNOWN [Concomitant]
  13. SAW  PALMETTO (SERENOA REPENS) [Concomitant]
     Active Substance: SAW PALMETTO

REACTIONS (2)
  - Constipation [None]
  - Allergic sinusitis [None]
